FAERS Safety Report 8301090-6 (Version None)
Quarter: 2012Q2

REPORT INFORMATION
  Report Type: 
  Country: None (occurrence: None)
  Receive Date: 20120420
  Receipt Date: 20120410
  Transmission Date: 20120825
  Serious: Yes (Hospitalization)
  Sender: FDA-Public Use
  Company Number: RU-GENZYME-FABR-1002433

PATIENT
  Sex: Male
  Weight: 87 kg

DRUGS (6)
  1. CALCIUM CARBONATE [Concomitant]
     Indication: HYPERPHOSPHATAEMIA
     Dosage: 3 G, QD
     Route: 065
  2. ENALAPRIL MALEATE [Concomitant]
     Indication: HYPERTENSION
     Route: 065
  3. FABRAZYME [Suspect]
     Indication: FABRY'S DISEASE
     Dosage: 1 MG/KG, Q2W
     Route: 042
     Dates: start: 20090101, end: 20110301
  4. ALFACALCIDOL [Concomitant]
     Indication: HYPERPHOSPHATAEMIA
     Route: 065
  5. FABRAZYME [Suspect]
     Dosage: 1 VIAL, Q2W
     Route: 042
     Dates: start: 20110301, end: 20110601
  6. HAEMODIALYTICS, CONCENTRATES [Concomitant]
     Indication: RENAL FAILURE CHRONIC
     Dosage: UNK
     Route: 065
     Dates: start: 20060506

REACTIONS (5)
  - RENAL FAILURE [None]
  - PAIN IN EXTREMITY [None]
  - DISEASE PROGRESSION [None]
  - PYREXIA [None]
  - PARAESTHESIA [None]
